FAERS Safety Report 8665049 (Version 3)
Quarter: 2012Q4

REPORT INFORMATION
  Report Type: 
  Country: US (occurrence: US)
  Receive Date: 20120627
  Receipt Date: 20121213
  Transmission Date: 20130627
  Serious: Yes (Hospitalization, Other)
  Sender: FDA-Public Use
  Company Number: US-009507513-2012SP033709

PATIENT
  Sex: Female

DRUGS (4)
  1. RIBAVIRIN [Suspect]
     Indication: HEPATITIS C
     Dosage: UNK UNK, Unknown
     Route: 065
     Dates: start: 20120106
  2. VICTRELIS [Suspect]
     Indication: HEPATITIS C
     Dosage: UNK UNK, Unknown
     Route: 065
     Dates: start: 20120204, end: 20121015
  3. PEGASYS [Suspect]
     Indication: HEPATITIS C
     Dosage: 180 ?g, Unknown
     Route: 065
     Dates: start: 20120106, end: 201206
  4. PEGASYS [Suspect]
     Dosage: 135 ?g, Unknown
     Route: 065
     Dates: start: 201206

REACTIONS (4)
  - White blood cell count decreased [Unknown]
  - Red blood cell count decreased [Unknown]
  - Anxiety [Unknown]
  - White blood cell count decreased [Not Recovered/Not Resolved]
